FAERS Safety Report 5665151-2 (Version None)
Quarter: 2008Q1

REPORT INFORMATION
  Report Type: 
  Country: None (occurrence: None)
  Receive Date: 20080314
  Receipt Date: 20080306
  Transmission Date: 20080703
  Serious: Yes (Hospitalization, Other)
  Sender: FDA-Public Use
  Company Number: US-PFIZER INC-2008021866

PATIENT
  Age: 45 Year
  Sex: Female

DRUGS (2)
  1. GEODON [Suspect]
     Indication: BIPOLAR DISORDER
     Dosage: DAILY DOSE:20MG
  2. GEODON [Suspect]
     Indication: MANIA

REACTIONS (5)
  - CENTRAL NERVOUS SYSTEM INFLAMMATION [None]
  - LABORATORY TEST ABNORMAL [None]
  - MIGRAINE [None]
  - PANIC ATTACK [None]
  - UNEVALUABLE EVENT [None]
